FAERS Safety Report 5708460-0 (Version None)
Quarter: 2008Q2

REPORT INFORMATION
  Report Type: 
  Country: None (occurrence: None)
  Receive Date: 20080417
  Receipt Date: 20080407
  Transmission Date: 20081010
  Serious: Yes (Hospitalization, Other)
  Sender: FDA-Public Use
  Company Number: JP-PFIZER INC-2008022493

PATIENT
  Sex: Male

DRUGS (6)
  1. ZITHROMAX [Suspect]
     Indication: PHARYNGITIS
     Route: 048
     Dates: start: 20060508, end: 20060510
  2. ZITHROMAX [Suspect]
     Dosage: DAILY DOSE:500MG
     Route: 048
     Dates: start: 20080225, end: 20080225
  3. AMBROXOL HYDROCHLORIDE [Suspect]
     Route: 048
  4. COUGHCODE N [Suspect]
     Dosage: TEXT:6 TAB-FREQ:TID
     Route: 048
  5. HERBAL PREPARATION [Concomitant]
     Route: 048
  6. NORVASC [Concomitant]
     Route: 048

REACTIONS (1)
  - ANAPHYLACTIC SHOCK [None]
